FAERS Safety Report 10415044 (Version 1)
Quarter: 2014Q2

REPORT INFORMATION
  Report Type: Spontaneous
  Country: US (occurrence: None)
  Receive Date: 20140514
  Receipt Date: 20140514
  Transmission Date: 20141212
  Serious: Yes (Other)
  Sender: FDA-Public Use
  Company Number: 106008U

PATIENT
  Sex: Female

DRUGS (2)
  1. CIMZIA [Suspect]
  2. 6-MP [Concomitant]

REACTIONS (1)
  - Oral mucosal blistering [None]
